FAERS Safety Report 21610539 (Version 3)
Quarter: 2022Q4

REPORT INFORMATION
  Report Type: Spontaneous
  Country: ES (occurrence: ES)
  Receive Date: 20221117
  Receipt Date: 20221219
  Transmission Date: 20230113
  Serious: Yes (Life-Threatening, Hospitalization)
  Sender: FDA-Public Use
  Company Number: ES-TILLOMEDPR-2022-EPL-003497

PATIENT
  Age: 52 Year
  Sex: Male

DRUGS (18)
  1. DARUNAVIR [Interacting]
     Active Substance: DARUNAVIR
     Indication: HIV infection
     Dosage: 600 MILLIGRAM/ 12 H, 600 MILLIGRAM, TWO TIMES A DAY
     Route: 048
     Dates: start: 20100824
  2. QUETIAPINE FUMARATE [Interacting]
     Active Substance: QUETIAPINE FUMARATE
     Indication: Antipsychotic therapy
     Dosage: 300 MILLIGRAM/ 12 H, 300 MILLIGRAM, TWO TIMES A DAY
     Route: 065
     Dates: start: 20170426
  3. OMEPRAZOLE [Concomitant]
     Active Substance: OMEPRAZOLE
     Indication: Ulcer
     Dosage: 40 MG/24 H
     Route: 065
     Dates: start: 20191127
  4. METAMIZOLE [Concomitant]
     Active Substance: METAMIZOLE
     Indication: Analgesic therapy
     Dosage: 575 MG, Q8H, 575 MILLIGRAM, 3 TIMES A DAY
     Route: 065
     Dates: start: 20210707
  5. CLORAZEPATE DIPOTASSIUM [Concomitant]
     Active Substance: CLORAZEPATE DIPOTASSIUM
     Indication: Anxiolytic therapy
     Dosage: 15 MILLIGRAM/4 AND HALF HOUR, 15 MILLIGRAM, 4.5H
     Route: 065
     Dates: start: 20190221
  6. FENOFIBRATE [Concomitant]
     Active Substance: FENOFIBRATE
     Indication: Lipids
     Dosage: 145 MG/24 H
     Route: 065
     Dates: start: 20200420
  7. ACETAMINOPHEN [Concomitant]
     Active Substance: ACETAMINOPHEN
     Indication: Analgesic therapy
     Dosage: 1 G, Q12H, 1 GRAM, TWO TIMES A DAY
     Route: 065
     Dates: start: 20210721
  8. ROSUVASTATIN [Concomitant]
     Active Substance: ROSUVASTATIN
     Indication: Lipids
     Dosage: 5 MG/24 H
     Route: 065
     Dates: start: 20180511
  9. ZOLPIDEM [Concomitant]
     Active Substance: ZOLPIDEM TARTRATE
     Indication: Hypnotherapy
     Dosage: 10 MG/24 H
     Route: 065
     Dates: start: 20190313
  10. DULAGLUTIDE [Concomitant]
     Active Substance: DULAGLUTIDE
     Indication: Diabetes mellitus
     Dosage: 1 MG, QW (1 MILLIGRAM/ 7 D)
     Route: 065
     Dates: start: 20190529
  11. DULAGLUTIDE [Concomitant]
     Active Substance: DULAGLUTIDE
     Dosage: 5 MG, QW (5 MILLIGRAM/ 7 D)
     Route: 065
     Dates: start: 20190529
  12. DULAGLUTIDE [Concomitant]
     Active Substance: DULAGLUTIDE
     Dosage: 1.5 MG/7 D
     Route: 065
     Dates: start: 20190529
  13. LOSARTAN [Concomitant]
     Active Substance: LOSARTAN
     Indication: Hypertension
     Dosage: 100 MG/24 H
     Route: 065
     Dates: start: 20181013
  14. GABAPENTIN [Concomitant]
     Active Substance: GABAPENTIN
     Indication: Analgesic therapy
     Dosage: 600 MG, Q8H, 600 MILLIGRAM, 3 TIMES A DAY
     Route: 065
     Dates: start: 20211015
  15. LORMETAZEPAM [Concomitant]
     Active Substance: LORMETAZEPAM
     Indication: Hypnotherapy
     Dosage: 2 G, Q24H
     Route: 065
     Dates: start: 20171216
  16. INSULIN GLARGINE [Concomitant]
     Active Substance: INSULIN GLARGINE
     Indication: Diabetes mellitus
     Dosage: 660 UI/24 H
     Route: 065
     Dates: start: 20190527
  17. INSULIN ASPART [Concomitant]
     Active Substance: INSULIN ASPART
     Indication: Diabetes mellitus
     Dosage: 30 IU, QD (10 UI/8 H)
     Route: 065
     Dates: start: 20200707
  18. ETRAVIRINE [Concomitant]
     Active Substance: ETRAVIRINE
     Indication: HIV infection
     Dosage: 200 MG/24 H
     Route: 065
     Dates: start: 20140527

REACTIONS (7)
  - Drug interaction [Recovered/Resolved]
  - Insomnia [Recovered/Resolved]
  - Tachycardia [Recovered/Resolved]
  - Restlessness [Recovered/Resolved]
  - Agitation [Recovered/Resolved]
  - Confusional state [Recovered/Resolved]
  - Drug level increased [Unknown]
